FAERS Safety Report 9295848 (Version 1)
Quarter: 2013Q1

REPORT INFORMATION
  Report Type: Spontaneous
  Country: US (occurrence: None)
  Receive Date: 20121227
  Receipt Date: 20121227
  Transmission Date: 20140127
  Serious: No
  Sender: FDA-Public Use
  Company Number: PHEH2012US021398

PATIENT
  Age: 69 Year
  Sex: Female

DRUGS (8)
  1. AFINITOR [Suspect]
  2. MULTI-VIT (VITAMINS NOS) [Suspect]
  3. SANDOSTATIN LAR (OCTREOTIDE ACETATE) [Concomitant]
  4. VITAMIN D (ERGOCALCIFEROL) [Concomitant]
  5. GLIMEPIRIDE (GLIMEPIRIDE) [Concomitant]
  6. SIMVASTATIN (SIMVASTATIN) [Concomitant]
  7. LISINOPRIL (LISINOPRIL) [Concomitant]
  8. ATENOLOL (ATENOLOL) [Concomitant]

REACTIONS (4)
  - Dysgeusia [None]
  - Feeling cold [None]
  - Fatigue [None]
  - Nail disorder [None]
